FAERS Safety Report 17349634 (Version 1)
Quarter: 2020Q1

REPORT INFORMATION
  Report Type: Spontaneous
  Country: US (occurrence: US)
  Receive Date: 20200130
  Receipt Date: 20200130
  Transmission Date: 20200409
  Serious: No
  Sender: FDA-Public Use
  Company Number: US-ELI_LILLY_AND_COMPANY-US202001012382

PATIENT
  Sex: Female

DRUGS (1)
  1. FORTEO [Suspect]
     Active Substance: TERIPARATIDE
     Indication: PRODUCT USED FOR UNKNOWN INDICATION
     Dosage: UNK UNK, UNKNOWN
     Route: 065
     Dates: end: 202001

REACTIONS (7)
  - Fatigue [Unknown]
  - Gait disturbance [Unknown]
  - Bone pain [Recovering/Resolving]
  - Malaise [Unknown]
  - Sleep disorder due to general medical condition, insomnia type [Unknown]
  - Peripheral swelling [Recovering/Resolving]
  - Arthralgia [Recovering/Resolving]
